FAERS Safety Report 22390073 (Version 2)
Quarter: 2024Q1

REPORT INFORMATION
  Report Type: Spontaneous
  Country: US (occurrence: US)
  Receive Date: 20230531
  Receipt Date: 20240301
  Transmission Date: 20240410
  Serious: No
  Sender: FDA-Public Use
  Company Number: US-Covis Pharma GmbH-2023COV01215

PATIENT
  Age: 56 Year
  Sex: Male
  Weight: 77.2 kg

DRUGS (4)
  1. RILUZOLE [Suspect]
     Active Substance: RILUZOLE
     Route: 048
  2. RADICAVA [Suspect]
     Active Substance: EDARAVONE
     Indication: Amyotrophic lateral sclerosis
     Dosage: QD FOR 14 DAYS ON, THEN 14 DAYS OFF
     Route: 048
     Dates: start: 202305
  3. RELYVRIO [Suspect]
     Active Substance: SODIUM PHENYLBUTYRATE\TAURURSODIOL
     Indication: Amyotrophic lateral sclerosis
     Dosage: 1 SACHET QD FOR 3 WEEKS, THEN 1 SACHET TWICE DAILY, 2/DAYS
     Route: 048
     Dates: start: 20230404, end: 20231102
  4. RELYVRIO [Suspect]
     Active Substance: SODIUM PHENYLBUTYRATE\TAURURSODIOL
     Dosage: 1 PACKET, BID THEREAFTER

REACTIONS (16)
  - Amnesia [Unknown]
  - Urticaria [Unknown]
  - Pruritus [Unknown]
  - Gastrointestinal disorder [Unknown]
  - Product use complaint [Unknown]
  - Poor quality sleep [Unknown]
  - Muscular weakness [Unknown]
  - Memory impairment [Unknown]
  - Constipation [Unknown]
  - Flatulence [Unknown]
  - Abdominal pain [Unknown]
  - Dizziness [Unknown]
  - Fatigue [Unknown]
  - Diarrhoea [Unknown]
  - Product use issue [Unknown]
  - Product dose omission in error [Unknown]

NARRATIVE: CASE EVENT DATE: 20231017
